FAERS Safety Report 10503081 (Version 1)
Quarter: 2014Q4

REPORT INFORMATION
  Report Type: Spontaneous
  Country: IN (occurrence: IN)
  Receive Date: 20141007
  Receipt Date: 20141007
  Transmission Date: 20150528
  Serious: Yes (Other)
  Sender: FDA-Public Use
  Company Number: IN-MYLANLABS-2014M1006405

PATIENT

DRUGS (3)
  1. PROXYVON [Suspect]
     Active Substance: ACETAMINOPHEN\PROPOXYPHENE
     Dosage: 24 CAPSULES/DAY
     Route: 065
  2. CLONIDINE. [Suspect]
     Active Substance: CLONIDINE
     Dosage: 0.5 MG/DAY
     Route: 065
  3. CLONAZEPAM. [Suspect]
     Active Substance: CLONAZEPAM
     Dosage: 2.5 MG/DAY
     Route: 065

REACTIONS (3)
  - Withdrawal hypertension [Unknown]
  - Drug dependence [Unknown]
  - Drug abuse [Unknown]
